FAERS Safety Report 17407712 (Version 2)
Quarter: 2020Q4

REPORT INFORMATION
  Report Type: Spontaneous
  Country: US (occurrence: US)
  Receive Date: 20200212
  Receipt Date: 20201217
  Transmission Date: 20210113
  Serious: Yes (Hospitalization)
  Sender: FDA-Public Use
  Company Number: US-MYLANLABS-2020M1015162

PATIENT
  Age: 11 Month
  Sex: Female
  Weight: 8.5 kg

DRUGS (3)
  1. LIDOCAINE. [Suspect]
     Active Substance: LIDOCAINE
     Indication: DERMATITIS DIAPER
     Dosage: APPLIED COPIOUSLY TO THE DIAPER RASH MULTIPLE TIMES DURING THE DAY
     Route: 061
  2. NYSTATIN. [Suspect]
     Active Substance: NYSTATIN
     Indication: DERMATITIS DIAPER
     Route: 061
  3. FLUCONAZOLE. [Suspect]
     Active Substance: FLUCONAZOLE
     Indication: DERMATITIS DIAPER
     Route: 048

REACTIONS (5)
  - Toxicity to various agents [Recovered/Resolved]
  - Drug ineffective [Unknown]
  - Status epilepticus [Recovered/Resolved]
  - Off label use [Unknown]
  - Intentional product misuse [Recovered/Resolved]
